FAERS Safety Report 19687518 (Version 1)
Quarter: 2021Q3

REPORT INFORMATION
  Report Type: Spontaneous
  Country: DE (occurrence: DE)
  Receive Date: 20210811
  Receipt Date: 20210811
  Transmission Date: 20211014
  Serious: Yes (Other)
  Sender: FDA-Public Use
  Company Number: DE-INSUD PHARMA-2107DE00866

PATIENT

DRUGS (3)
  1. PROTEIN [Concomitant]
     Active Substance: PROTEIN
     Dosage: DAILY INTAKE OF 400 GRAM
  2. TESTOSTERONE. [Suspect]
     Active Substance: TESTOSTERONE
     Indication: MUSCLE BUILDING THERAPY
     Dosage: INJECTIONS
     Route: 065
  3. STEROIDS [Suspect]
     Active Substance: UNSPECIFIED INGREDIENT
     Indication: MUSCLE BUILDING THERAPY
     Dosage: INJECTIONS
     Route: 065

REACTIONS (13)
  - Porphyria acute [Recovered/Resolved]
  - Skin plaque [Recovered/Resolved]
  - Chromaturia [Recovered/Resolved]
  - Drug abuse [Unknown]
  - Pruritus [Recovered/Resolved]
  - Muscle spasms [Recovered/Resolved]
  - Blister [Recovered/Resolved]
  - Pain of skin [Recovered/Resolved]
  - Skin burning sensation [Recovered/Resolved]
  - Photosensitivity reaction [Not Recovered/Not Resolved]
  - Scar [Not Recovered/Not Resolved]
  - Skin erosion [Recovered/Resolved]
  - Dysaesthesia [Not Recovered/Not Resolved]
